FAERS Safety Report 8536924-3 (Version None)
Quarter: 2012Q3

REPORT INFORMATION
  Report Type: 
  Country: None (occurrence: None)
  Receive Date: 20120725
  Receipt Date: 20120717
  Transmission Date: 20120928
  Serious: Yes (Hospitalization)
  Sender: FDA-Public Use
  Company Number: JP-AMGEN-JPNSP2012035680

PATIENT
  Age: 56 Year
  Sex: Female
  Weight: 51 kg

DRUGS (11)
  1. ZETIA [Concomitant]
     Route: 048
  2. EDIROL(ELDECALCITOL) [Concomitant]
     Route: 048
     Dates: start: 20120523
  3. LOSARTAN POTASSIUM [Concomitant]
     Route: 048
  4. VALTREX [Concomitant]
     Route: 048
     Dates: start: 20120510
  5. RANMARK [Suspect]
     Indication: MULTIPLE MYELOMA
     Dosage: 120 MG, QD
     Route: 058
     Dates: start: 20120523, end: 20120523
  6. PERSANTINE [Concomitant]
     Route: 048
  7. CALCIUM CARBONATE [Concomitant]
     Route: 048
  8. VFEND [Concomitant]
     Route: 048
     Dates: start: 20120510
  9. VELCADE [Suspect]
     Indication: MULTIPLE MYELOMA
     Dosage: 1.9 MG, QD
     Route: 042
     Dates: start: 20120508
  10. CADUET [Concomitant]
     Route: 048
  11. ASPIRIN [Concomitant]
     Dosage: 100 MG, QD
     Route: 048

REACTIONS (1)
  - HYPOCALCAEMIA [None]
